FAERS Safety Report 7108409-2 (Version None)
Quarter: 2010Q4

REPORT INFORMATION
  Report Type: 
  Country: None (occurrence: None)
  Receive Date: 20101117
  Receipt Date: 20101110
  Transmission Date: 20110411
  Serious: Yes (Hospitalization)
  Sender: FDA-Public Use
  Company Number: A0891841A

PATIENT
  Age: 53 Year
  Sex: Female

DRUGS (4)
  1. SELZENTRY [Suspect]
     Indication: HIV INFECTION
     Dates: start: 20101004
  2. RALTEGRAVIR [Concomitant]
  3. ATAZANAVIR [Concomitant]
  4. RITONAVIR [Concomitant]

REACTIONS (5)
  - BACK PAIN [None]
  - EOSINOPHILIA [None]
  - LIVER FUNCTION TEST ABNORMAL [None]
  - PAIN IN EXTREMITY [None]
  - RASH [None]
